FAERS Safety Report 5421275-6 (Version None)
Quarter: 2007Q3

REPORT INFORMATION
  Report Type: 
  Country: None (occurrence: None)
  Receive Date: 20070821
  Receipt Date: 20070813
  Transmission Date: 20080115
  Serious: Yes (Other)
  Sender: FDA-Public Use
  Company Number: US-ELI_LILLY_AND_COMPANY-US200708002648

PATIENT
  Age: 65 Year
  Sex: Male

DRUGS (1)
  1. HUMULIN N [Suspect]
     Indication: DIABETES MELLITUS

REACTIONS (4)
  - BLINDNESS [None]
  - BLOOD GLUCOSE FLUCTUATION [None]
  - EYE LASER SURGERY [None]
  - VISUAL DISTURBANCE [None]
